FAERS Safety Report 8342020-0 (Version None)
Quarter: 2012Q2

REPORT INFORMATION
  Report Type: 
  Country: None (occurrence: None)
  Receive Date: 20120507
  Receipt Date: 20120503
  Transmission Date: 20120825
  Serious: Yes (Hospitalization)
  Sender: FDA-Public Use
  Company Number: ES-BRISTOL-MYERS SQUIBB COMPANY-15710122

PATIENT
  Age: 61 Year
  Sex: Male

DRUGS (4)
  1. BELATACEPT [Suspect]
     Indication: RENAL TRANSPLANT
     Route: 042
     Dates: start: 20070126
  2. MYCOPHENOLATE MOFETIL (CELLCEPT) [Suspect]
     Dates: start: 20080813
  3. PREDNISONE [Suspect]
     Dates: start: 20070830
  4. ALLOPURINOL [Concomitant]
     Dates: start: 20071021

REACTIONS (1)
  - PYREXIA [None]
